FAERS Safety Report 16302746 (Version 2)
Quarter: 2019Q2

REPORT INFORMATION
  Report Type: Report from Study
  Country: CA (occurrence: CA)
  Receive Date: 20190513
  Receipt Date: 20190524
  Transmission Date: 20190711
  Serious: Yes (Other)
  Sender: FDA-Public Use
  Company Number: CA-ROCHE-1399084

PATIENT
  Age: 50 Year
  Sex: Female
  Weight: 104.5 kg

DRUGS (16)
  1. HYDROCHLOROTHIAZIDE. [Concomitant]
     Active Substance: HYDROCHLOROTHIAZIDE
     Indication: HYPERTENSION
  2. ACTEMRA [Suspect]
     Active Substance: TOCILIZUMAB
     Route: 042
     Dates: start: 20151028
  3. MIRENA [Concomitant]
     Active Substance: LEVONORGESTREL
     Indication: CONTRACEPTION
  4. RESTASIS [Concomitant]
     Active Substance: CYCLOSPORINE
     Route: 065
  5. LEFLUNOMIDE. [Concomitant]
     Active Substance: LEFLUNOMIDE
  6. OMEPRAZOLE. [Concomitant]
     Active Substance: OMEPRAZOLE
     Indication: ULCER
  7. ORENCIA [Concomitant]
     Active Substance: ABATACEPT
     Dosage: LAST DOSE MAR 13
     Route: 065
  8. DOVOBET [Concomitant]
     Active Substance: BETAMETHASONE\CALCIPOTRIENE
     Indication: PSORIASIS
  9. VENLAFAXINE [Concomitant]
     Active Substance: VENLAFAXINE HYDROCHLORIDE
     Indication: ANXIETY
  10. METHOTREXATE. [Suspect]
     Active Substance: METHOTREXATE
     Indication: PSORIASIS
     Route: 065
  11. SORIATANE [Suspect]
     Active Substance: ACITRETIN
     Indication: PRODUCT USED FOR UNKNOWN INDICATION
     Route: 065
  12. SALAGEN [Concomitant]
     Active Substance: PILOCARPINE HYDROCHLORIDE
     Indication: DRY MOUTH
  13. ATORVASTATIN [Concomitant]
     Active Substance: ATORVASTATIN
  14. ACTEMRA [Suspect]
     Active Substance: TOCILIZUMAB
     Indication: RHEUMATOID ARTHRITIS
     Route: 042
     Dates: start: 20140410, end: 20150929
  15. TYLENOL ARTHRITIS PAIN [Concomitant]
     Active Substance: ACETAMINOPHEN
     Indication: ARTHRITIS
  16. GABAPENTIN. [Concomitant]
     Active Substance: GABAPENTIN

REACTIONS (24)
  - Amnesia [Not Recovered/Not Resolved]
  - Psoriasis [Not Recovered/Not Resolved]
  - Hepatic enzyme increased [Unknown]
  - Vomiting [Recovered/Resolved]
  - Blister [Recovered/Resolved]
  - Tooth disorder [Unknown]
  - Blood pressure diastolic decreased [Unknown]
  - Hypotension [Unknown]
  - Hot flush [Unknown]
  - Blood pressure diastolic increased [Unknown]
  - Arthritis [Not Recovered/Not Resolved]
  - Folliculitis [Not Recovered/Not Resolved]
  - Wrong technique in product usage process [Unknown]
  - Bacterial infection [Recovered/Resolved]
  - Arthralgia [Unknown]
  - Weight increased [Not Recovered/Not Resolved]
  - Nasopharyngitis [Recovered/Resolved]
  - Exposure to communicable disease [Unknown]
  - Pain [Unknown]
  - Increased tendency to bruise [Unknown]
  - Nasopharyngitis [Not Recovered/Not Resolved]
  - Tanning [Not Recovered/Not Resolved]
  - Body temperature increased [Unknown]
  - Rhinorrhoea [Unknown]

NARRATIVE: CASE EVENT DATE: 201407
